FAERS Safety Report 25134234 (Version 1)
Quarter: 2025Q1

REPORT INFORMATION
  Report Type: Spontaneous
  Country: AR (occurrence: AR)
  Receive Date: 20250328
  Receipt Date: 20250328
  Transmission Date: 20250408
  Serious: Yes (Other)
  Sender: RANBAXY
  Company Number: AR-SUN PHARMACEUTICAL INDUSTRIES LTD-2025R1-500938

PATIENT
  Age: 39 Year
  Sex: Male

DRUGS (3)
  1. FOLIC ACID [Suspect]
     Active Substance: FOLIC ACID
     Indication: Porphyria acute
     Route: 065
  2. VITAMIN B [Suspect]
     Active Substance: VITAMIN B
     Indication: Porphyria acute
     Route: 065
  3. DEXTROSE [Suspect]
     Active Substance: DEXTROSE MONOHYDRATE
     Indication: Porphyria acute
     Route: 065

REACTIONS (2)
  - Disease recurrence [Unknown]
  - Therapeutic response decreased [Unknown]
